FAERS Safety Report 5728899-7 (Version None)
Quarter: 2008Q2

REPORT INFORMATION
  Report Type: 
  Country: None (occurrence: None)
  Receive Date: 20080506
  Receipt Date: 20080502
  Transmission Date: 20081010
  Serious: Yes (Life-Threatening, Hospitalization, Other)
  Sender: FDA-Public Use
  Company Number: US-BAYER-200711713BCC

PATIENT
  Age: 7 Year
  Sex: Female
  Weight: 66 kg

DRUGS (2)
  1. ASPIRIN [Suspect]
     Indication: VARICELLA
     Route: 048
     Dates: start: 19740101
  2. ASPIRIN [Suspect]
     Indication: VARICELLA
     Route: 048
     Dates: start: 19740101

REACTIONS (3)
  - COMA [None]
  - CROHN'S DISEASE [None]
  - REYE'S SYNDROME [None]
